FAERS Safety Report 5615853-9 (Version None)
Quarter: 2008Q1

REPORT INFORMATION
  Report Type: 
  Country: None (occurrence: None)
  Receive Date: 20080206
  Receipt Date: 20080125
  Transmission Date: 20080703
  Serious: Yes (Other)
  Sender: FDA-Public Use
  Company Number: US-ELI_LILLY_AND_COMPANY-US200801006118

PATIENT
  Age: 9 Year
  Sex: Male
  Weight: 33.56 kg

DRUGS (4)
  1. STRATTERA [Suspect]
     Indication: ATTENTION DEFICIT/HYPERACTIVITY DISORDER
     Dosage: UNK MG, UNK
     Dates: start: 20051201, end: 20051201
  2. STRATTERA [Suspect]
     Dosage: 40 MG, DAILY (1/D)
     Dates: start: 20051201, end: 20071001
  3. STRATTERA [Suspect]
     Dosage: 60 MG, UNK
     Dates: start: 20071001, end: 20071101
  4. CONCERTA [Concomitant]
     Indication: ATTENTION DEFICIT/HYPERACTIVITY DISORDER
     Dosage: 36 MG, UNK
     Dates: end: 20071001

REACTIONS (3)
  - CHOREOATHETOSIS [None]
  - CONDITION AGGRAVATED [None]
  - TIC [None]
